FAERS Safety Report 7636880-6 (Version None)
Quarter: 2011Q3

REPORT INFORMATION
  Report Type: 
  Country: None (occurrence: None)
  Receive Date: 20110726
  Receipt Date: 20110718
  Transmission Date: 20111222
  Serious: Yes (Death, Hospitalization)
  Sender: FDA-Public Use
  Company Number: US-BAYER-201032530NA

PATIENT
  Age: 50 Year
  Sex: Female
  Weight: 70 kg

DRUGS (12)
  1. AZMACORT [Concomitant]
  2. BIAXIN [Concomitant]
  3. FLONASE [Concomitant]
  4. SERZONE [Concomitant]
     Dosage: 250 MG, UNK
  5. HYOSCYAMINE [Concomitant]
  6. GABITRIL [Concomitant]
     Dosage: 4 MG, UNK
  7. CLARITIN [Concomitant]
  8. YASMIN [Suspect]
     Indication: ORAL CONTRACEPTION
     Dosage: UNK
     Route: 048
     Dates: start: 20030801
  9. ZOLOFT [Concomitant]
  10. ALPRAZOLAM [Concomitant]
  11. PREDNISONE [Concomitant]
  12. SEREVENT [Concomitant]

REACTIONS (1)
  - PULMONARY EMBOLISM [None]
